FAERS Safety Report 18930728 (Version 2)
Quarter: 2021Q1

REPORT INFORMATION
  Report Type: Spontaneous
  Country: US (occurrence: US)
  Receive Date: 20210223
  Receipt Date: 20210318
  Transmission Date: 20210420
  Serious: Yes (Death, Other)
  Sender: FDA-Public Use
  Company Number: US-PFIZER INC-2021195154

PATIENT
  Age: 65 Year
  Sex: Female
  Weight: 70 kg

DRUGS (1)
  1. XELJANZ [Suspect]
     Active Substance: TOFACITINIB CITRATE
     Dosage: UNK

REACTIONS (2)
  - Cardiac arrest [Fatal]
  - COVID-19 pneumonia [Fatal]
